FAERS Safety Report 18608242 (Version 1)
Quarter: 2020Q4

REPORT INFORMATION
  Report Type: Report from Study
  Country: GB (occurrence: GB)
  Receive Date: 20201212
  Receipt Date: 20201212
  Transmission Date: 20210114
  Serious: Yes (Other)
  Sender: FDA-Public Use
  Company Number: NVSC2020GB312164

PATIENT
  Sex: Female

DRUGS (1)
  1. LUTATHERA [Suspect]
     Active Substance: LUTETIUM OXODOTREOTIDE LU-177
     Indication: NEUROENDOCRINE TUMOUR
     Dosage: UNK (EVERY 12 WEEKS)
     Route: 042

REACTIONS (3)
  - Pollakiuria [Unknown]
  - Back pain [Not Recovered/Not Resolved]
  - Kidney infection [Unknown]
